FAERS Safety Report 8329316-3 (Version None)
Quarter: 2012Q2

REPORT INFORMATION
  Report Type: 
  Country: None (occurrence: None)
  Receive Date: 20120502
  Receipt Date: 20111215
  Transmission Date: 20120825
  Serious: No
  Sender: FDA-Public Use
  Company Number: US-ASTRAZENECA-2011SE75946

PATIENT
  Age: 42 Year
  Sex: Female

DRUGS (5)
  1. LEVOTHYROXINE SODIUM [Concomitant]
  2. FASLODEX [Suspect]
     Indication: BREAST CANCER
     Route: 030
     Dates: start: 20111001
  3. VITAMIN TAB [Concomitant]
  4. XANAX [Concomitant]
  5. FISH OIL [Concomitant]

REACTIONS (4)
  - BACK PAIN [None]
  - VISUAL FIELD DEFECT [None]
  - COUGH [None]
  - VISUAL IMPAIRMENT [None]
